FAERS Safety Report 12930504 (Version 2)
Quarter: 2016Q4

REPORT INFORMATION
  Report Type: Report from Study
  Country: NL (occurrence: NL)
  Receive Date: 20161110
  Receipt Date: 20161221
  Transmission Date: 20170207
  Serious: Yes (Hospitalization)
  Sender: FDA-Public Use
  Company Number: NL-TEVA-710450ROM

PATIENT
  Age: 68 Year
  Sex: Female

DRUGS (12)
  1. LONQUEX 6MG OPLOSSING VOOR INJECTIE [Suspect]
     Active Substance: LIPEGFILGRASTIM
     Indication: PROPHYLAXIS
     Dosage: LAST ADMINISTRATION DATE BEFORE AE OCCURENCE 30-SEP-2016
     Route: 058
     Dates: start: 20160609, end: 20160930
  2. VINCRISTINE [Suspect]
     Active Substance: VINCRISTINE
     Indication: NON-HODGKIN^S LYMPHOMA
     Dosage: LAST ADMINISTRATION DATE BEFORE AE OCCURENCE 29-SEP-2016
     Route: 042
     Dates: start: 20160608, end: 20160929
  3. CYCLOPHOSPHAMIDE. [Suspect]
     Active Substance: CYCLOPHOSPHAMIDE
     Indication: NON-HODGKIN^S LYMPHOMA
     Dosage: LAST ADMINISTRATION DATE BEFORE AE OCCURENCE 29-SEP-2016
     Route: 042
     Dates: start: 20160608
  4. PREDNISON [Suspect]
     Active Substance: PREDNISONE
     Indication: NON-HODGKIN^S LYMPHOMA
     Route: 048
     Dates: start: 20160722
  5. DOXORUBICIN [Suspect]
     Active Substance: DOXORUBICIN
     Indication: NON-HODGKIN^S LYMPHOMA
     Dosage: LAST ADMINISTRATION DATE BEFORE AE OCCURENCE 29-SEP-2016
     Route: 042
     Dates: start: 20160608, end: 20160929
  6. RITUXIMAB [Concomitant]
     Active Substance: RITUXIMAB
     Dates: start: 20160929, end: 20160929
  7. PREDNISON [Suspect]
     Active Substance: PREDNISONE
     Dosage: LAST ADMINISTRATION DATE BEFORE AE OCCURENCE 03-OCT-2016
     Route: 048
     Dates: start: 20160722, end: 20161003
  8. DIVISUN [Concomitant]
     Indication: VITAMIN D DECREASED
     Route: 048
     Dates: start: 201301
  9. CEFUROXIME. [Concomitant]
     Active Substance: CEFUROXIME
     Indication: PROPHYLAXIS
     Dosage: 3 TIMES A DAY 1500 MG BEFORE AND AFTER CHOLECYSTECTOMY
     Route: 042
  10. VINBLASTINE [Concomitant]
     Active Substance: VINBLASTINE
     Dosage: 10 MILLIGRAM DAILY;
     Dates: start: 20160929, end: 20160929
  11. METOPROLOL. [Concomitant]
     Active Substance: METOPROLOL
     Indication: HYPERTENSION
     Route: 048
     Dates: start: 201605
  12. FLAGYL [Concomitant]
     Active Substance: METRONIDAZOLE\METRONIDAZOLE HYDROCHLORIDE
     Indication: PROPHYLAXIS
     Dosage: 3 TIMES A DAY 1500 MG BEFORE AND AFTER CHOLECYSTECTOMY
     Route: 042

REACTIONS (1)
  - Malaise [Recovered/Resolved]

NARRATIVE: CASE EVENT DATE: 20161008
